FAERS Safety Report 11395089 (Version 2)
Quarter: 2015Q3

REPORT INFORMATION
  Report Type: Report from Study
  Country: FR (occurrence: FR)
  Receive Date: 20150819
  Receipt Date: 20150827
  Transmission Date: 20151125
  Serious: Yes (Hospitalization, Other)
  Sender: FDA-Public Use
  Company Number: FR-009507513-1506FRA008455

PATIENT
  Age: 64 Year
  Sex: Male
  Weight: 50 kg

DRUGS (1)
  1. FIDAXOMICIN [Suspect]
     Active Substance: FIDAXOMICIN
     Indication: CLOSTRIDIUM DIFFICILE COLITIS
     Dosage: 200 (UNIT NOT PROVIDED), QOD
     Route: 048
     Dates: start: 20150604, end: 20150629

REACTIONS (7)
  - Subileus [Recovered/Resolved]
  - Small intestinal obstruction [Unknown]
  - Abdominal pain [Not Recovered/Not Resolved]
  - Subileus [Recovered/Resolved]
  - Sepsis [Unknown]
  - Abdominal pain [Not Recovered/Not Resolved]
  - Fatigue [Not Recovered/Not Resolved]

NARRATIVE: CASE EVENT DATE: 20150615
